FAERS Safety Report 15030641 (Version 3)
Quarter: 2018Q3

REPORT INFORMATION
  Report Type: Report from Study
  Country: BR (occurrence: BR)
  Receive Date: 20180619
  Receipt Date: 20180703
  Transmission Date: 20181010
  Serious: Yes (Other)
  Sender: FDA-Public Use
  Company Number: PHHY2018BR025053

PATIENT
  Sex: Female
  Weight: 45 kg

DRUGS (3)
  1. TEGRETOL [Suspect]
     Active Substance: CARBAMAZEPINE
     Indication: EPILEPSY
     Dosage: 1 DF, UNK
     Route: 048
  2. TEGRETOL XR [Suspect]
     Active Substance: CARBAMAZEPINE
     Indication: DRUG DEPENDENCE
  3. TEGRETOL XR [Suspect]
     Active Substance: CARBAMAZEPINE
     Indication: EPILEPSY
     Dosage: 1 DF, Q12H (25 YEARS AGO)
     Route: 048
     Dates: start: 201003

REACTIONS (9)
  - Abdominal pain [Recovering/Resolving]
  - Hepatic pain [Recovering/Resolving]
  - Maternal exposure during pregnancy [Unknown]
  - Drug ineffective [Recovering/Resolving]
  - Epilepsy [Recovering/Resolving]
  - Abortion spontaneous [Recovering/Resolving]
  - Drug dependence [Recovering/Resolving]
  - Abortion spontaneous [Recovered/Resolved]
  - Dizziness [Recovering/Resolving]

NARRATIVE: CASE EVENT DATE: 1990
